FAERS Safety Report 16204467 (Version 4)
Quarter: 2019Q2

REPORT INFORMATION
  Report Type: Report from Study
  Country: US (occurrence: US)
  Receive Date: 20190416
  Receipt Date: 20190626
  Transmission Date: 20190711
  Serious: Yes (Disabling, Other)
  Sender: FDA-Public Use
  Company Number: US-ACTELION-A-NJ2018-168507

PATIENT
  Age: 52 Year
  Sex: Female
  Weight: 90.7 kg

DRUGS (7)
  1. OPSUMIT [Suspect]
     Active Substance: MACITENTAN
     Indication: PULMONARY HYPERTENSION
     Dosage: 10 MG, QD
     Route: 048
     Dates: start: 20180201
  2. VELETRI [Suspect]
     Active Substance: EPOPROSTENOL
     Dosage: 38 NG/KG, PER MIN
     Route: 042
  3. VELETRI [Suspect]
     Active Substance: EPOPROSTENOL
     Dosage: 29 NG/KG, PER MIN
     Route: 042
  4. OPSUMIT [Suspect]
     Active Substance: MACITENTAN
     Dosage: UNK
     Route: 048
     Dates: start: 201904
  5. VELETRI [Suspect]
     Active Substance: EPOPROSTENOL
     Indication: PULMONARY HYPERTENSION
     Dosage: 37 NG/KG, PER MIN
     Route: 042
  6. VELETRI [Suspect]
     Active Substance: EPOPROSTENOL
     Dosage: 34 NG/KG, PER MIN
     Route: 042
  7. VELETRI [Suspect]
     Active Substance: EPOPROSTENOL
     Dosage: 31 NG/KG, PER MIN
     Route: 042

REACTIONS (40)
  - Nasal discomfort [Unknown]
  - Pneumonia [Unknown]
  - Drug intolerance [Unknown]
  - Product dose omission [Unknown]
  - Nasal congestion [Recovering/Resolving]
  - Lethargy [Unknown]
  - Fatigue [Unknown]
  - Influenza [Recovering/Resolving]
  - Scleroderma [Unknown]
  - Lower respiratory tract infection [Unknown]
  - Oxygen saturation decreased [Unknown]
  - Crepitations [Unknown]
  - Wheezing [Recovering/Resolving]
  - Catheter management [Unknown]
  - Thirst decreased [Unknown]
  - Depressed mood [Unknown]
  - Nausea [Unknown]
  - Dizziness [Unknown]
  - Dysgeusia [Unknown]
  - Sensory overload [Unknown]
  - Weight decreased [Unknown]
  - Somnolence [Unknown]
  - Device alarm issue [Unknown]
  - Influenza like illness [Recovering/Resolving]
  - Lacrimation increased [Unknown]
  - Condition aggravated [Unknown]
  - Decreased appetite [Unknown]
  - Pain in extremity [Unknown]
  - Unevaluable event [Unknown]
  - Headache [Unknown]
  - Malaise [Unknown]
  - Pyrexia [Unknown]
  - Diarrhoea [Unknown]
  - Blood potassium decreased [Unknown]
  - Nasopharyngitis [Unknown]
  - Dyspnoea [Recovering/Resolving]
  - Device occlusion [Unknown]
  - Calcinosis [Unknown]
  - Device leakage [Unknown]
  - Dehydration [Unknown]

NARRATIVE: CASE EVENT DATE: 201805
